FAERS Safety Report 25300674 (Version 1)
Quarter: 2025Q2

REPORT INFORMATION
  Report Type: Spontaneous
  Country: US (occurrence: None)
  Receive Date: 20250509
  Receipt Date: 20250509
  Transmission Date: 20250717
  Serious: Yes (Other)
  Sender: FDA-CTU
  Company Number: None

PATIENT
  Age: 44 Year
  Sex: Female

DRUGS (1)
  1. TECFIDERA [Suspect]
     Active Substance: DIMETHYL FUMARATE
     Indication: Multiple sclerosis
     Dosage: 240MG BID

REACTIONS (8)
  - Flushing [None]
  - Gait disturbance [None]
  - Muscular weakness [None]
  - Muscle spasticity [None]
  - Muscular weakness [None]
  - Fatigue [None]
  - Cognitive disorder [None]
  - Fall [None]
